FAERS Safety Report 8210521-1 (Version None)
Quarter: 2012Q1

REPORT INFORMATION
  Report Type: 
  Country: None (occurrence: None)
  Receive Date: 20120314
  Receipt Date: 20111005
  Transmission Date: 20120608
  Serious: No
  Sender: FDA-Public Use
  Company Number: US-ASTRAZENECA-2010SE35310

PATIENT
  Age: 58 Year
  Sex: Female

DRUGS (2)
  1. TOPROL-XL [Suspect]
     Route: 048
  2. CAPOTEN [Concomitant]

REACTIONS (6)
  - HEART RATE DECREASED [None]
  - HEADACHE [None]
  - BLOOD PRESSURE INCREASED [None]
  - MALAISE [None]
  - ASTHENIA [None]
  - DRUG DOSE OMISSION [None]
